FAERS Safety Report 9669957 (Version 1)
Quarter: 2013Q4

REPORT INFORMATION
  Report Type: Spontaneous
  Country: US (occurrence: US)
  Receive Date: 20131105
  Receipt Date: 20131105
  Transmission Date: 20140711
  Serious: Yes (Hospitalization)
  Sender: FDA-Public Use
  Company Number: US-GLAXOSMITHKLINE-A1048330A

PATIENT
  Age: 50 Year
  Sex: Female

DRUGS (1)
  1. IMITREX [Suspect]
     Indication: MIGRAINE
     Dosage: 100MG UNKNOWN
     Route: 065
     Dates: start: 20090811

REACTIONS (5)
  - Convulsion [Unknown]
  - Migraine [Unknown]
  - Fall [Unknown]
  - Head injury [Unknown]
  - Concussion [Unknown]
